FAERS Safety Report 6646263-3 (Version None)
Quarter: 2010Q1

REPORT INFORMATION
  Report Type: 
  Country: None (occurrence: None)
  Receive Date: 20100322
  Receipt Date: 20100322
  Transmission Date: 20100710
  Serious: Yes (Life-Threatening, Disabling)
  Sender: FDA-Public Use
  Company Number: None

PATIENT
  Sex: Female
  Weight: 72.1219 kg

DRUGS (1)
  1. ACTONEL [Suspect]
     Indication: OSTEOPOROSIS
     Dosage: 35MG 1 PER WEEK

REACTIONS (8)
  - ABASIA [None]
  - BLOOD DISORDER [None]
  - BLOOD PRESSURE INCREASED [None]
  - HEADACHE [None]
  - PAIN IN JAW [None]
  - PALPITATIONS [None]
  - SENSATION OF HEAVINESS [None]
  - SPEECH DISORDER [None]
